FAERS Safety Report 5373455-6 (Version None)
Quarter: 2007Q2

REPORT INFORMATION
  Report Type: 
  Country: None (occurrence: None)
  Receive Date: 20070628
  Receipt Date: 20070618
  Transmission Date: 20071010
  Serious: Yes (Death)
  Sender: FDA-Public Use
  Company Number: DE-SHR-DE-2007-020586

PATIENT
  Sex: Male
  Weight: 70 kg

DRUGS (1)
  1. CAMPATH [Suspect]
     Dosage: 30 MG, UNK
     Route: 058
     Dates: start: 20051101, end: 20060201

REACTIONS (4)
  - ALANINE AMINOTRANSFERASE INCREASED [None]
  - BLOOD LACTATE DEHYDROGENASE INCREASED [None]
  - C-REACTIVE PROTEIN INCREASED [None]
  - DIARRHOEA [None]
